FAERS Safety Report 15686383 (Version 2)
Quarter: 2021Q4

REPORT INFORMATION
  Report Type: Spontaneous
  Country: US (occurrence: US)
  Receive Date: 20181204
  Receipt Date: 20211202
  Transmission Date: 20220303
  Serious: Yes (Hospitalization, Disabling, Other)
  Sender: FDA-Public Use
  Company Number: US-TEVA-2018-US-982206

PATIENT
  Age: 37 Year
  Sex: Female

DRUGS (8)
  1. DOCETAXEL [Suspect]
     Active Substance: DOCETAXEL
     Indication: Invasive ductal breast carcinoma
     Dosage: 3RD CYCLE
     Route: 065
     Dates: start: 20150710, end: 20150710
  2. CARBOPLATIN [Suspect]
     Active Substance: CARBOPLATIN
     Indication: Invasive ductal breast carcinoma
     Dosage: 5TH AND 6TH CYCLES
     Route: 065
     Dates: start: 20150827, end: 20150917
  3. DOCETAXEL [Suspect]
     Active Substance: DOCETAXEL
     Indication: Invasive ductal breast carcinoma
     Dosage: 1,2,4,5,6 CYCLES ON 29-MAY-2015, 19-JUN-2015, 6-AUG-2015, 27-AUG-2015, 17-SEP-2015
     Route: 065
     Dates: start: 20150529, end: 20150917
  4. CARBOPLATIN [Suspect]
     Active Substance: CARBOPLATIN
     Indication: Invasive ductal breast carcinoma
     Dosage: 1,2, 4 CYCLES ON 29-MAY-2015, 19-JUN-2015, 6-AUG-2015
     Route: 065
     Dates: start: 20150529, end: 20150806
  5. CARBOPLATIN [Suspect]
     Active Substance: CARBOPLATIN
     Dosage: 3RD CYCLE
     Route: 065
     Dates: start: 20150710, end: 20150710
  6. HERCEPTIN [Suspect]
     Active Substance: TRASTUZUMAB
     Indication: Invasive ductal breast carcinoma
     Dosage: 6 CYCLES ON 29-MAY-2015, 19-JUN-2015, 10-JUL-2015, 6-AUG-2015, 27-AUG-2015, 17-SEP-2015
     Route: 065
     Dates: start: 20150529, end: 20150529
  7. PERJETA [Suspect]
     Active Substance: PERTUZUMAB
     Indication: Invasive ductal breast carcinoma
     Dosage: 6 CYCLES ON 29-MAY-2015, 19-JUN-2015, 10-JUL-2015, 6-AUG-2015, 27-AUG-2015, 17-SEP-2015
     Route: 065
     Dates: start: 20150529, end: 20150529
  8. DEXAMETHASONE [Concomitant]
     Active Substance: DEXAMETHASONE
     Route: 048
     Dates: start: 201505

REACTIONS (29)
  - Alopecia areata [Not Recovered/Not Resolved]
  - Madarosis [Not Recovered/Not Resolved]
  - Neutropenia [Not Recovered/Not Resolved]
  - Febrile neutropenia [Recovered/Resolved]
  - Immunodeficiency [Not Recovered/Not Resolved]
  - Sepsis [Unknown]
  - Chest pain [Recovered/Resolved]
  - Chest discomfort [Recovered/Resolved]
  - Dyspnoea [Not Recovered/Not Resolved]
  - Sinus tachycardia [Not Recovered/Not Resolved]
  - Nausea [Not Recovered/Not Resolved]
  - Vomiting [Not Recovered/Not Resolved]
  - Headache [Unknown]
  - Diarrhoea [Not Recovered/Not Resolved]
  - Hypoaesthesia [Unknown]
  - Normochromic normocytic anaemia [Recovered/Resolved]
  - Hypokalaemia [Not Recovered/Not Resolved]
  - Hyponatraemia [Recovered/Resolved]
  - Asthenia [Not Recovered/Not Resolved]
  - Myalgia [Unknown]
  - Malaise [Unknown]
  - Urinary tract infection [Unknown]
  - Fatigue [Unknown]
  - Pneumonia pseudomonal [Unknown]
  - Gastroenteritis clostridial [Unknown]
  - Thrombocytopenia [Unknown]
  - Myelosuppression [Unknown]
  - Hair colour changes [Not Recovered/Not Resolved]
  - Hair texture abnormal [Not Recovered/Not Resolved]

NARRATIVE: CASE EVENT DATE: 20150101
